FAERS Safety Report 8912547 (Version 1)
Quarter: 2012Q4

REPORT INFORMATION
  Report Type: Report from Study
  Country: BE (occurrence: BE)
  Receive Date: 20121116
  Receipt Date: 20121116
  Transmission Date: 20130627
  Serious: Yes (Hospitalization)
  Sender: FDA-Public Use
  Company Number: BE-ROCHE-1153035

PATIENT
  Age: 80 Year
  Sex: Female
  Weight: 73 kg

DRUGS (13)
  1. METHOXY POLYETHYLENE GLYCOL-EPOETIN BETA [Suspect]
     Indication: NEPHROGENIC ANAEMIA
     Route: 042
     Dates: start: 20120307, end: 20120307
  2. METHOXY POLYETHYLENE GLYCOL-EPOETIN BETA [Suspect]
     Route: 042
     Dates: start: 20120201, end: 20120201
  3. METHOXY POLYETHYLENE GLYCOL-EPOETIN BETA [Suspect]
     Route: 042
     Dates: start: 20120104, end: 20120104
  4. DARBEPOETIN ALFA [Suspect]
     Indication: NEPHROGENIC ANAEMIA
     Dosage: latest recieved dose on 08/Aug/2012.
     Route: 042
     Dates: start: 20120404
  5. DARBEPOETIN ALFA [Suspect]
     Route: 042
     Dates: start: 20120418
  6. DARBEPOETIN ALFA [Suspect]
     Route: 042
     Dates: start: 20120502
  7. DARBEPOETIN ALFA [Suspect]
     Route: 042
     Dates: start: 20120516
  8. DARBEPOETIN ALFA [Suspect]
     Route: 042
     Dates: start: 20120530
  9. DARBEPOETIN ALFA [Suspect]
     Route: 042
     Dates: start: 20120613
  10. DARBEPOETIN ALFA [Suspect]
     Route: 042
     Dates: start: 20120627
  11. DARBEPOETIN ALFA [Suspect]
     Route: 042
     Dates: start: 20120711
  12. DARBEPOETIN ALFA [Suspect]
     Route: 042
     Dates: start: 20120727
  13. DARBEPOETIN ALFA [Suspect]
     Route: 042
     Dates: start: 20120808

REACTIONS (2)
  - Device leakage [Recovered/Resolved]
  - Haematoma [Unknown]
